FAERS Safety Report 4384780-X (Version None)
Quarter: 2004Q2

REPORT INFORMATION
  Report Type: 
  Country: None (occurrence: None)
  Receive Date: 20040621
  Receipt Date: 20040615
  Transmission Date: 20050107
  Serious: Yes (Hospitalization)
  Sender: FDA-Public Use
  Company Number: LTI2003A00228

PATIENT
  Age: 34 Year
  Sex: Female

DRUGS (1)
  1. LEUPROLIDE ACETATE [Suspect]
     Indication: IN VITRO FERTILISATION
     Dosage: 3.75 MG (3.75 MG, 1 IN 28 D)
     Route: 030
     Dates: start: 20030908, end: 20030908

REACTIONS (7)
  - CAESAREAN SECTION [None]
  - CHORIOAMNIONITIS [None]
  - DRUG EXPOSURE DURING PREGNANCY [None]
  - PLACENTAL DISORDER [None]
  - PREMATURE BABY [None]
  - THROMBOSIS [None]
  - TRISOMY 21 [None]
